FAERS Safety Report 9439284 (Version 1)
Quarter: 2013Q3

REPORT INFORMATION
  Report Type: Spontaneous
  Country: US (occurrence: US)
  Receive Date: 20130804
  Receipt Date: 20130804
  Transmission Date: 20140515
  Serious: No
  Sender: FDA-Public Use
  Company Number: US-009507513-1307USA015529

PATIENT
  Age: 57 Year
  Sex: Female

DRUGS (6)
  1. FOSAMAX [Suspect]
     Indication: OSTEOPENIA
     Dosage: 70 MG, QW
     Route: 048
     Dates: start: 201007, end: 201307
  2. FLONASE [Concomitant]
  3. ALLEGRA [Concomitant]
  4. ZOCOR [Concomitant]
     Route: 048
  5. VIACTIV SOFT CALCIUM CHEWS [Concomitant]
  6. VITAMIN D (UNSPECIFIED) [Concomitant]

REACTIONS (2)
  - Bone density decreased [Unknown]
  - Gingival pain [Unknown]
